FAERS Safety Report 7249227-4 (Version None)
Quarter: 2011Q1

REPORT INFORMATION
  Report Type: 
  Country: None (occurrence: None)
  Receive Date: 20110118
  Receipt Date: 20101221
  Transmission Date: 20110831
  Serious: Yes (Hospitalization)
  Sender: FDA-Public Use
  Company Number: 011941

PATIENT
  Sex: Female

DRUGS (16)
  1. TRIHEXYPHENIDYL HCL [Concomitant]
  2. FELBINAC [Concomitant]
  3. ATENOLOL [Concomitant]
  4. FLUOCINONIDE [Concomitant]
  5. ROTIGOTINE (ROTIGOTINE) [Suspect]
     Indication: PARKINSON'S DISEASE
     Dosage: SEE IMAGE
     Route: 062
     Dates: start: 20100304
  6. ROTIGOTINE (ROTIGOTINE) [Suspect]
     Indication: PARKINSON'S DISEASE
     Dosage: SEE IMAGE
     Route: 062
     Dates: start: 20100311, end: 20100506
  7. ROTIGOTINE (ROTIGOTINE) [Suspect]
     Indication: PARKINSON'S DISEASE
     Dosage: SEE IMAGE
     Route: 062
     Dates: start: 20100217
  8. ROTIGOTINE (ROTIGOTINE) [Suspect]
     Indication: PARKINSON'S DISEASE
     Dosage: SEE IMAGE
     Route: 062
     Dates: start: 20100121
  9. ROTIGOTINE (ROTIGOTINE) [Suspect]
     Indication: PARKINSON'S DISEASE
     Dosage: SEE IMAGE
     Route: 062
     Dates: start: 20100203
  10. ROTIGOTINE (ROTIGOTINE) [Suspect]
     Indication: PARKINSON'S DISEASE
     Dosage: SEE IMAGE
     Route: 062
     Dates: start: 20100224
  11. ROTIGOTINE (ROTIGOTINE) [Suspect]
     Indication: PARKINSON'S DISEASE
     Dosage: SEE IMAGE
     Route: 062
     Dates: start: 20100127
  12. ROTIGOTINE (ROTIGOTINE) [Suspect]
     Indication: PARKINSON'S DISEASE
     Dosage: SEE IMAGE
     Route: 062
     Dates: start: 20100210
  13. SENNOSIDE A+B [Concomitant]
  14. CARBIDOPA + LEVODOPA [Concomitant]
  15. LOXOPROFEN SODIUM [Concomitant]
  16. BENIDIPINE HYDROCHLORIDE [Concomitant]

REACTIONS (9)
  - MUSCLE RIGIDITY [None]
  - WALKING AID USER [None]
  - WHEELCHAIR USER [None]
  - POSTURE ABNORMAL [None]
  - TORTICOLLIS [None]
  - ACTIVITIES OF DAILY LIVING IMPAIRED [None]
  - TREMOR [None]
  - PAIN [None]
  - GAIT DISTURBANCE [None]
